FAERS Safety Report 4440809-1 (Version None)
Quarter: 2004Q3

REPORT INFORMATION
  Report Type: 
  Country: None (occurrence: None)
  Receive Date: 20040903
  Receipt Date: 20040227
  Transmission Date: 20050211
  Serious: Yes (Other)
  Sender: FDA-Public Use
  Company Number: CH-BRISTOL-MYERS SQUIBB COMPANY-12529236

PATIENT
  Age: 37 Year
  Sex: Female

DRUGS (9)
  1. ENDOXAN [Suspect]
     Indication: ALLERGIC GRANULOMATOUS ANGIITIS
     Dosage: TOTAL OF 4 DOSES FROM 22-SEP TO 11-NOV-2003
     Route: 042
     Dates: start: 20030922, end: 20030922
  2. DIANE-35 [Suspect]
     Indication: CONTRACEPTION
     Dosage: THERAPY DATES: UNKNOWN TO 21-NOV-2003 DOSE: 0.035
     Route: 048
     Dates: end: 20031121
  3. RENITEN [Suspect]
     Indication: HYPERTENSION
     Route: 048
  4. SERETIDE [Suspect]
     Indication: ASTHMA
     Route: 055
  5. NASONEX [Suspect]
     Indication: RHINITIS
     Dosage: 2 SPRAYS TWICE DAILY
     Route: 045
  6. PREDNISONE [Concomitant]
     Route: 048
  7. CIPRALEX [Concomitant]
     Route: 048
  8. OMEPRAZOLE [Concomitant]
     Route: 048
  9. AZT [Concomitant]
     Indication: HEPATITIS

REACTIONS (2)
  - ABORTION INDUCED [None]
  - DRUG EXPOSURE DURING PREGNANCY [None]
